FAERS Safety Report 25889948 (Version 1)
Quarter: 2025Q4

REPORT INFORMATION
  Report Type: Spontaneous
  Country: US (occurrence: US)
  Receive Date: 20251007
  Receipt Date: 20251007
  Transmission Date: 20260117
  Serious: No
  Sender: GLAXOSMITHKLINE
  Company Number: US-GSK-US2025116641

PATIENT
  Age: 50 Year
  Sex: Female

DRUGS (5)
  1. JEMPERLI [Suspect]
     Active Substance: DOSTARLIMAB-GXLY
     Indication: Endometrial cancer
  2. CARBOPLATIN [Concomitant]
     Active Substance: CARBOPLATIN
     Indication: Endometrial cancer
  3. PACLITAXEL [Concomitant]
     Active Substance: PACLITAXEL
     Indication: Endometrial cancer
  4. CLARITIN [Concomitant]
     Active Substance: LORATADINE
     Indication: Product used for unknown indication
  5. ALEVE [Concomitant]
     Active Substance: NAPROXEN SODIUM
     Indication: Product used for unknown indication
     Dosage: UNK

REACTIONS (2)
  - Diarrhoea [Recovered/Resolved]
  - Arthralgia [Recovered/Resolved]

NARRATIVE: CASE EVENT DATE: 20250821
